FAERS Safety Report 10467499 (Version 1)
Quarter: 2014Q3

REPORT INFORMATION
  Report Type: Spontaneous
  Country: CH (occurrence: CH)
  Receive Date: 20140922
  Receipt Date: 20140922
  Transmission Date: 20150326
  Serious: Yes (Death, Other)
  Sender: FDA-Public Use
  Company Number: PHHY2014CH121214

PATIENT
  Age: 35 Year
  Sex: Female

DRUGS (15)
  1. RANITIDINE [Concomitant]
     Active Substance: RANITIDINE\RANITIDINE HYDROCHLORIDE
  2. TENOFOVIR [Concomitant]
     Active Substance: TENOFOVIR
  3. RALTEGRAVIR [Concomitant]
     Active Substance: RALTEGRAVIR
  4. DARUNAVIR [Concomitant]
     Active Substance: DARUNAVIR
  5. VORICONAZOLE. [Interacting]
     Active Substance: VORICONAZOLE
     Dosage: 4 MG/KG, Q12H
     Route: 042
  6. VORICONAZOLE. [Suspect]
     Active Substance: VORICONAZOLE
     Dosage: 100 MG, BID
     Route: 048
  7. EMTRICITABINE [Concomitant]
     Active Substance: EMTRICITABINE
  8. VORICONAZOLE. [Interacting]
     Active Substance: VORICONAZOLE
     Dosage: 2.5 MG/KG, Q12H
     Route: 042
  9. RITONAVIR [Interacting]
     Active Substance: RITONAVIR
  10. DEXAMETHASONE. [Concomitant]
     Active Substance: DEXAMETHASONE
     Dosage: 3 MG, TID
     Route: 042
  11. ATAZANAVIR [Concomitant]
     Active Substance: ATAZANAVIR
  12. ESOMEPRAZOLE [Interacting]
     Active Substance: ESOMEPRAZOLE
     Dosage: 40 MG, BID
  13. ESOMEPRAZOLE [Interacting]
     Active Substance: ESOMEPRAZOLE
     Dosage: 40 MG, BID
     Route: 042
  14. AMPHOTERICIN-B-FLUCYTOSINE [Concomitant]
     Dates: start: 201206
  15. ABACAVIR [Concomitant]
     Active Substance: ABACAVIR

REACTIONS (4)
  - Progressive multifocal leukoencephalopathy [Unknown]
  - Drug level below therapeutic [Unknown]
  - Drug interaction [Unknown]
  - Death [Fatal]
